FAERS Safety Report 9058701 (Version 6)
Quarter: 2013Q3

REPORT INFORMATION
  Report Type: Spontaneous
  Country: CA (occurrence: CA)
  Receive Date: 20130204
  Receipt Date: 20130829
  Transmission Date: 20140515
  Serious: Yes (Death, Hospitalization)
  Sender: FDA-Public Use
  Company Number: CA-BAXTER-2013BAX002789

PATIENT
  Age: 44 Year
  Sex: Female
  Weight: 50 kg

DRUGS (9)
  1. DIANEAL PD4 SOLUTION WITH 1.5% DEXTROSE AND 2.5 MEQ/L CALCIUM [Suspect]
     Indication: RENAL FAILURE
     Route: 033
     Dates: start: 20090529, end: 20130811
  2. DIANEAL PD4 SOLUTION WITH 1.5% DEXTROSE AND 2.5 MEQ/L CALCIUM [Suspect]
     Indication: PERITONEAL DIALYSIS
  3. DIANEAL PD4 SOLUTION WITH 1.5% DEXTROSE AND 2.5 MEQ/L CALCIUM [Suspect]
     Indication: PERITONEAL DIALYSIS
  4. DIANEAL PD4 SOLUTION WITH 2.5% DEXTROSE AND 2.5 MEQ/L CALCIUM [Suspect]
     Indication: RENAL FAILURE
     Route: 033
     Dates: start: 20090529, end: 20130811
  5. DIANEAL PD4 SOLUTION WITH 2.5% DEXTROSE AND 2.5 MEQ/L CALCIUM [Suspect]
     Indication: PERITONEAL DIALYSIS
  6. DIANEAL PD4 SOLUTION WITH 2.5% DEXTROSE AND 2.5 MEQ/L CALCIUM [Suspect]
     Indication: PERITONEAL DIALYSIS
  7. EXTRANEAL [Suspect]
     Indication: RENAL FAILURE
     Route: 033
     Dates: start: 20090529, end: 20130811
  8. EXTRANEAL [Suspect]
     Indication: PERITONEAL DIALYSIS
  9. EXTRANEAL [Suspect]
     Indication: PERITONEAL DIALYSIS

REACTIONS (12)
  - Post procedural complication [Fatal]
  - Intestinal ischaemia [Fatal]
  - Intestinal infarction [Fatal]
  - Diabetic complication [Not Recovered/Not Resolved]
  - Diabetic vascular disorder [Not Recovered/Not Resolved]
  - Renal failure chronic [Unknown]
  - Gastrointestinal necrosis [Recovering/Resolving]
  - Diabetic vascular disorder [Unknown]
  - Sepsis [Unknown]
  - Mesenteric arteriosclerosis [Unknown]
  - Peripheral ischaemia [Unknown]
  - Peritonitis [Unknown]
